FAERS Safety Report 17931068 (Version 2)
Quarter: 2020Q3

REPORT INFORMATION
  Report Type: Spontaneous
  Country: US (occurrence: US)
  Receive Date: 20200623
  Receipt Date: 20200803
  Transmission Date: 20201103
  Serious: No
  Sender: FDA-Public Use
  Company Number: US-FRESENIUS KABI-FK202006285

PATIENT
  Age: 31 Year
  Sex: Female

DRUGS (3)
  1. MAGNESIUM SULFATE (MANUFACTURER UNKNOWN) [Suspect]
     Active Substance: MAGNESIUM SULFATE
     Indication: SEIZURE PROPHYLAXIS
     Route: 065
     Dates: start: 20200410, end: 20200410
  2. NIFEDIPINE. [Suspect]
     Active Substance: NIFEDIPINE
     Indication: PRODUCT USED FOR UNKNOWN INDICATION
     Route: 065
     Dates: start: 20200410, end: 20200410
  3. MAGNESIUM SULFATE (MANUFACTURER UNKNOWN) [Suspect]
     Active Substance: MAGNESIUM SULFATE
     Indication: PRE-ECLAMPSIA
     Dosage: 4 GRAM LOADING DOSE
     Route: 065
     Dates: start: 20200410, end: 20200410

REACTIONS (8)
  - Adverse reaction [Recovered/Resolved]
  - Mood altered [Recovered/Resolved]
  - Eyelid function disorder [Recovered/Resolved]
  - Disorientation [Recovered/Resolved]
  - Dyspnoea [Recovered/Resolved]
  - Asthenia [Recovered/Resolved]
  - Disorganised speech [Recovered/Resolved]
  - Aphasia [Recovered/Resolved]

NARRATIVE: CASE EVENT DATE: 20200410
